FAERS Safety Report 14580672 (Version 1)
Quarter: 2018Q1

REPORT INFORMATION
  Report Type: Spontaneous
  Country: US (occurrence: US)
  Receive Date: 20180228
  Receipt Date: 20180228
  Transmission Date: 20180509
  Serious: No
  Sender: FDA-Public Use
  Company Number: US-TEVA-2018-US-854932

PATIENT
  Sex: Male

DRUGS (2)
  1. OXYMORPHONE HYDROCHLORIDE. [Suspect]
     Active Substance: OXYMORPHONE HYDROCHLORIDE
     Route: 065
  2. XTAMPZA ER [Suspect]
     Active Substance: OXYCODONE
     Route: 065

REACTIONS (3)
  - Nausea [Unknown]
  - Dizziness [Unknown]
  - Malaise [Unknown]
